FAERS Safety Report 13960540 (Version 1)
Quarter: 2017Q3

REPORT INFORMATION
  Report Type: Spontaneous
  Country: US (occurrence: US)
  Receive Date: 20170912
  Receipt Date: 20170912
  Transmission Date: 20171128
  Serious: No
  Sender: FDA-Public Use
  Company Number: US-ALLERGAN-1673272US

PATIENT
  Sex: Female

DRUGS (2)
  1. HUMIRA [Suspect]
     Active Substance: ADALIMUMAB
     Indication: PSORIATIC ARTHROPATHY
     Dosage: 40 MG, UNK
     Route: 058
     Dates: start: 20160114, end: 20160314
  2. LEXAPRO [Suspect]
     Active Substance: ESCITALOPRAM OXALATE
     Indication: PRODUCT USED FOR UNKNOWN INDICATION
     Dosage: 10 MG, UNK
     Route: 048
     Dates: end: 20160214

REACTIONS (6)
  - Cough [Unknown]
  - Rash [Unknown]
  - Weight increased [Recovered/Resolved]
  - Depressed level of consciousness [Recovering/Resolving]
  - Dyspnoea [Unknown]
  - Asthenia [Recovering/Resolving]
